FAERS Safety Report 5847323-7 (Version None)
Quarter: 2008Q3

REPORT INFORMATION
  Report Type: 
  Country: None (occurrence: None)
  Receive Date: 20080731
  Receipt Date: 20080506
  Transmission Date: 20090109
  Serious: No
  Sender: FDA-Public Use
  Company Number: US200805001219

PATIENT
  Age: 64 Year
  Sex: Female
  Weight: 73.9 kg

DRUGS (11)
  1. BYETTA [Suspect]
     Indication: TYPE 2 DIABETES MELLITUS
     Dosage: 5 UG, 2/D, SUBCUTANEOUS, 5  UG, DAILY (1/D), SUBCUTANEOUS, 5 UG, 2/D, SUBCUTANEOUS
     Route: 058
     Dates: start: 20080319, end: 20080401
  2. BYETTA [Suspect]
     Indication: TYPE 2 DIABETES MELLITUS
     Dosage: 5 UG, 2/D, SUBCUTANEOUS, 5  UG, DAILY (1/D), SUBCUTANEOUS, 5 UG, 2/D, SUBCUTANEOUS
     Route: 058
     Dates: start: 20080401, end: 20080401
  3. BYETTA [Suspect]
     Indication: TYPE 2 DIABETES MELLITUS
     Dosage: 5 UG, 2/D, SUBCUTANEOUS, 5  UG, DAILY (1/D), SUBCUTANEOUS, 5 UG, 2/D, SUBCUTANEOUS
     Route: 058
     Dates: start: 20080401
  4. METFORMIN HCL [Concomitant]
  5. STARLIX [Concomitant]
  6. GLIPIZIDE [Concomitant]
  7. ACTOS [Concomitant]
  8. ATENOLOL [Concomitant]
  9. INDAPAMIDE [Concomitant]
  10. CLONIDINE [Concomitant]
  11. COZAAR [Concomitant]

REACTIONS (6)
  - BLOOD GLUCOSE DECREASED [None]
  - BLOOD GLUCOSE INCREASED [None]
  - BLOOD PRESSURE INCREASED [None]
  - FEELING COLD [None]
  - HEADACHE [None]
  - VOMITING [None]
